FAERS Safety Report 7276803-5 (Version None)
Quarter: 2011Q1

REPORT INFORMATION
  Report Type: 
  Country: None (occurrence: None)
  Receive Date: 20110207
  Receipt Date: 20110125
  Transmission Date: 20110831
  Serious: Yes (Hospitalization)
  Sender: FDA-Public Use
  Company Number: US-BIOGENIDEC-2010BI026597

PATIENT
  Age: 42 Year
  Sex: Female
  Weight: 99 kg

DRUGS (2)
  1. TYSABRI [Suspect]
     Route: 042
     Dates: start: 20110114
  2. TYSABRI [Suspect]
     Indication: MULTIPLE SCLEROSIS
     Route: 042
     Dates: start: 20090408, end: 20101230

REACTIONS (13)
  - BLOOD PRESSURE INCREASED [None]
  - LOWER RESPIRATORY TRACT INFECTION [None]
  - PNEUMONIA [None]
  - POOR VENOUS ACCESS [None]
  - CYSTITIS [None]
  - LOSS OF CONTROL OF LEGS [None]
  - HEART RATE INCREASED [None]
  - WEIGHT INCREASED [None]
  - NEPHROLITHIASIS [None]
  - DEHYDRATION [None]
  - FALL [None]
  - KIDNEY INFECTION [None]
  - MULTIPLE SCLEROSIS RELAPSE [None]
